FAERS Safety Report 7391246-1 (Version None)
Quarter: 2011Q2

REPORT INFORMATION
  Report Type: 
  Country: None (occurrence: None)
  Receive Date: 20110404
  Receipt Date: 20110324
  Transmission Date: 20111010
  Serious: Yes (Hospitalization)
  Sender: FDA-Public Use
  Company Number: US-US-EMD SERONO, INC.-7049899

PATIENT
  Sex: Female
  Weight: 119 kg

DRUGS (2)
  1. REBIF [Suspect]
     Dates: start: 20091001, end: 20100401
  2. REBIF [Suspect]
     Indication: MULTIPLE SCLEROSIS
     Dates: start: 20050101

REACTIONS (2)
  - CERVIX DISORDER [None]
  - DRUG EXPOSURE DURING PREGNANCY [None]
